FAERS Safety Report 22370001 (Version 2)
Quarter: 2023Q2

REPORT INFORMATION
  Report Type: Spontaneous
  Country: US (occurrence: US)
  Receive Date: 20230526
  Receipt Date: 20230623
  Transmission Date: 20230722
  Serious: Yes (Death, Hospitalization, Other)
  Sender: FDA-Public Use
  Company Number: US-009507513-2305USA008159

PATIENT
  Age: 83 Year
  Sex: Female
  Weight: 120.18 kg

DRUGS (1)
  1. VERQUVO [Suspect]
     Active Substance: VERICIGUAT
     Indication: Cardiac failure congestive
     Dosage: 2.5 MILLIGRAM, QD
     Route: 048
     Dates: start: 20230408, end: 20230410

REACTIONS (2)
  - Acute kidney injury [Fatal]
  - Cardiac failure congestive [Fatal]

NARRATIVE: CASE EVENT DATE: 20230410
